FAERS Safety Report 9316722 (Version 1)
Quarter: 2013Q2

REPORT INFORMATION
  Report Type: Spontaneous
  Country: US (occurrence: None)
  Receive Date: 20130528
  Receipt Date: 20130528
  Transmission Date: 20140414
  Serious: Yes (Other)
  Sender: FDA-Public Use
  Company Number: None

PATIENT
  Age: 36 Year
  Sex: Female
  Weight: 74.39 kg

DRUGS (1)
  1. DEPO PROVERA [Suspect]

REACTIONS (5)
  - Headache [None]
  - Depression [None]
  - Mood swings [None]
  - Weight increased [None]
  - Libido decreased [None]
